FAERS Safety Report 14930853 (Version 4)
Quarter: 2019Q2

REPORT INFORMATION
  Report Type: Report from Study
  Country: CA (occurrence: CA)
  Receive Date: 20180524
  Receipt Date: 20190604
  Transmission Date: 20190711
  Serious: Yes (Hospitalization, Other)
  Sender: FDA-Public Use
  Company Number: CA-UCBSA-2018005067

PATIENT
  Age: 68 Year
  Sex: Female

DRUGS (2)
  1. VENTOLIN [Suspect]
     Active Substance: ALBUTEROL SULFATE
     Indication: PRODUCT USED FOR UNKNOWN INDICATION
     Dosage: UNK
  2. CERTOLIZUMAB PEGOL [Suspect]
     Active Substance: CERTOLIZUMAB PEGOL
     Indication: PSORIATIC ARTHROPATHY
     Dosage: 400 MG, EV 4 WEEKS
     Route: 058
     Dates: start: 20180131, end: 20180426

REACTIONS (6)
  - Tremor [Unknown]
  - Arthralgia [Unknown]
  - Off label use [Unknown]
  - Bronchitis [Unknown]
  - Bladder prolapse [Recovered/Resolved]
  - Back pain [Unknown]

NARRATIVE: CASE EVENT DATE: 2018
